FAERS Safety Report 18895540 (Version 1)
Quarter: 2021Q1

REPORT INFORMATION
  Report Type: Spontaneous
  Country: US (occurrence: US)
  Receive Date: 20210216
  Receipt Date: 20210216
  Transmission Date: 20210420
  Serious: No
  Sender: FDA-Public Use
  Company Number: US-NEUROCRINE BIOSCIENCES INC.-2021NBI00499

PATIENT
  Age: 59 Year
  Sex: Female

DRUGS (2)
  1. INGREZZA [Suspect]
     Active Substance: VALBENAZINE
     Dosage: FOR 1 WEEK
     Route: 048
     Dates: end: 20210202
  2. INGREZZA [Suspect]
     Active Substance: VALBENAZINE
     Indication: PRODUCT USED FOR UNKNOWN INDICATION
     Dosage: FOR 2 WEEKS
     Route: 048

REACTIONS (3)
  - Rash [Unknown]
  - Hypersensitivity [Unknown]
  - Urticaria [Unknown]
